FAERS Safety Report 4288113-9 (Version None)
Quarter: 2004Q1

REPORT INFORMATION
  Report Type: 
  Country: None (occurrence: None)
  Receive Date: 20040209
  Receipt Date: 20030819
  Transmission Date: 20041129
  Serious: No
  Sender: FDA-Public Use
  Company Number: US-GLAXOSMITHKLINE-A0422598A

PATIENT

DRUGS (1)
  1. PAXIL [Suspect]
     Dates: start: 19990101

REACTIONS (1)
  - WEIGHT INCREASED [None]
